FAERS Safety Report 6858512-7 (Version None)
Quarter: 2010Q3

REPORT INFORMATION
  Report Type: 
  Country: None (occurrence: None)
  Receive Date: 20100719
  Receipt Date: 20080209
  Transmission Date: 20110219
  Serious: No
  Sender: FDA-Public Use
  Company Number: US-PFIZER INC-2008012705

PATIENT
  Sex: Female
  Weight: 74.545 kg

DRUGS (6)
  1. CHANTIX [Suspect]
     Indication: SMOKING CESSATION THERAPY
     Dates: start: 20080201
  2. GLIPIZIDE [Concomitant]
     Indication: DIABETES MELLITUS
  3. METFORMIN HCL [Concomitant]
     Indication: DIABETES MELLITUS
  4. ENALAPRIL MALEATE [Concomitant]
     Indication: BLOOD PRESSURE ABNORMAL
  5. METOPROLOL [Concomitant]
     Indication: BLOOD PRESSURE ABNORMAL
  6. DOXAZOSIN [Concomitant]
     Indication: BLOOD PRESSURE ABNORMAL

REACTIONS (1)
  - SOMNOLENCE [None]
